FAERS Safety Report 25177990 (Version 1)
Quarter: 2025Q2

REPORT INFORMATION
  Report Type: Other
  Country: JP (occurrence: JP)
  Receive Date: 20250409
  Receipt Date: 20250409
  Transmission Date: 20250716
  Serious: Yes (Life-Threatening)
  Sender: INNOGENIX
  Company Number: JP-Innogenix, LLC-2174523

PATIENT
  Age: 8 Month
  Sex: Male

DRUGS (1)
  1. PROPRANOLOL HYDROCHLORIDE [Suspect]
     Active Substance: PROPRANOLOL HYDROCHLORIDE
     Indication: Infantile haemangioma

REACTIONS (2)
  - Asthma [Recovered/Resolved]
  - Product use in unapproved indication [Unknown]
